FAERS Safety Report 6500762-3 (Version None)
Quarter: 2009Q4

REPORT INFORMATION
  Report Type: 
  Country: None (occurrence: None)
  Receive Date: 20091216
  Receipt Date: 20090210
  Transmission Date: 20100525
  Serious: No
  Sender: FDA-Public Use
  Company Number: A0767874A

PATIENT
  Sex: Female

DRUGS (2)
  1. COMMIT [Suspect]
     Dates: start: 20090119
  2. COMMIT [Suspect]
     Dates: start: 20090119

REACTIONS (6)
  - ARTHRALGIA [None]
  - HYPERSENSITIVITY [None]
  - JOINT SWELLING [None]
  - SNEEZING [None]
  - SWELLING [None]
  - SWELLING FACE [None]
